FAERS Safety Report 17510902 (Version 1)
Quarter: 2020Q1

REPORT INFORMATION
  Report Type: Spontaneous
  Country: US (occurrence: US)
  Receive Date: 20200306
  Receipt Date: 20200306
  Transmission Date: 20200409
  Serious: Yes (Hospitalization)
  Sender: FDA-Public Use
  Company Number: None

PATIENT
  Sex: Female

DRUGS (6)
  1. MORPHINE [Concomitant]
     Active Substance: MORPHINE
  2. JADENU [Suspect]
     Active Substance: DEFERASIROX
     Indication: SICKLE CELL DISEASE
     Route: 048
     Dates: start: 20150617
  3. OXYCODONE [Concomitant]
     Active Substance: OXYCODONE
  4. FOLIC ACID. [Concomitant]
     Active Substance: FOLIC ACID
  5. TRAMADOL. [Concomitant]
     Active Substance: TRAMADOL
  6. OMEPRAZOLE. [Concomitant]
     Active Substance: OMEPRAZOLE

REACTIONS (1)
  - Hospitalisation [None]
